FAERS Safety Report 20547118 (Version 1)
Quarter: 2022Q1

REPORT INFORMATION
  Report Type: Report from Study
  Country: US (occurrence: US)
  Receive Date: 20220303
  Receipt Date: 20220303
  Transmission Date: 20220423
  Serious: Yes (Hospitalization, Other)
  Sender: FDA-Public Use
  Company Number: US-NPS_Pharmaceuticals-002454

PATIENT
  Age: 49 Year
  Sex: Female
  Weight: 50 kg

DRUGS (23)
  1. TEDUGLUTIDE [Suspect]
     Active Substance: TEDUGLUTIDE
     Indication: Short-bowel syndrome
     Dosage: 0.5 MILLIGRAM/KILOGRAM
     Route: 058
     Dates: start: 20150202
  2. TEDUGLUTIDE [Suspect]
     Active Substance: TEDUGLUTIDE
     Indication: Short-bowel syndrome
     Dosage: 0.5 MILLIGRAM/KILOGRAM
     Route: 058
     Dates: start: 20150202
  3. TEDUGLUTIDE [Suspect]
     Active Substance: TEDUGLUTIDE
     Indication: Short-bowel syndrome
     Dosage: 0.5 MILLIGRAM/KILOGRAM
     Route: 058
     Dates: start: 20150202
  4. TEDUGLUTIDE [Suspect]
     Active Substance: TEDUGLUTIDE
     Indication: Short-bowel syndrome
     Dosage: 0.5 MILLIGRAM/KILOGRAM
     Route: 058
     Dates: start: 20150202
  5. TEDUGLUTIDE [Suspect]
     Active Substance: TEDUGLUTIDE
     Dosage: 0.5 MILLIGRAM/KILOGRAM, QD
     Route: 058
     Dates: start: 20131020, end: 20150202
  6. TEDUGLUTIDE [Suspect]
     Active Substance: TEDUGLUTIDE
     Dosage: 0.5 MILLIGRAM/KILOGRAM, QD
     Route: 058
     Dates: start: 20131020, end: 20150202
  7. TEDUGLUTIDE [Suspect]
     Active Substance: TEDUGLUTIDE
     Dosage: 0.5 MILLIGRAM/KILOGRAM, QD
     Route: 058
     Dates: start: 20131020, end: 20150202
  8. TEDUGLUTIDE [Suspect]
     Active Substance: TEDUGLUTIDE
     Dosage: 0.5 MILLIGRAM/KILOGRAM, QD
     Route: 058
     Dates: start: 20131020, end: 20150202
  9. TEDUGLUTIDE [Suspect]
     Active Substance: TEDUGLUTIDE
     Dosage: 0.5 MILLIGRAM/KILOGRAM
     Route: 065
     Dates: start: 20150203, end: 201511
  10. TEDUGLUTIDE [Suspect]
     Active Substance: TEDUGLUTIDE
     Dosage: 0.5 MILLIGRAM/KILOGRAM
     Route: 065
     Dates: start: 20150203, end: 201511
  11. TEDUGLUTIDE [Suspect]
     Active Substance: TEDUGLUTIDE
     Dosage: 0.5 MILLIGRAM/KILOGRAM
     Route: 065
     Dates: start: 20150203, end: 201511
  12. TEDUGLUTIDE [Suspect]
     Active Substance: TEDUGLUTIDE
     Dosage: 0.5 MILLIGRAM/KILOGRAM
     Route: 065
     Dates: start: 20150203, end: 201511
  13. TPN [Concomitant]
     Active Substance: AMINO ACIDS\DEXTROSE\ELECTROLYTES NOS\SOYBEAN OIL
     Indication: Medical diet
     Dosage: 1 LITER
     Route: 051
     Dates: start: 20150522
  14. TPN [Concomitant]
     Active Substance: AMINO ACIDS\DEXTROSE\ELECTROLYTES NOS\SOYBEAN OIL
     Dosage: 0.78 LITER
     Route: 051
     Dates: start: 20150407, end: 20150521
  15. TPN [Concomitant]
     Active Substance: AMINO ACIDS\DEXTROSE\ELECTROLYTES NOS\SOYBEAN OIL
     Dosage: 1.5 LITER
     Route: 051
     Dates: start: 20141231, end: 20150406
  16. TPN [Concomitant]
     Active Substance: AMINO ACIDS\DEXTROSE\ELECTROLYTES NOS\SOYBEAN OIL
     Dosage: UNK
     Route: 065
     Dates: start: 20200902, end: 20200902
  17. VITAMINS [Concomitant]
     Active Substance: VITAMINS
     Indication: Vitamin supplementation
     Dosage: 999 DOSAGE FORM
     Route: 048
     Dates: start: 20140711
  18. PREVACID [Concomitant]
     Active Substance: LANSOPRAZOLE
     Indication: Gastrooesophageal reflux disease
     Dosage: 30 MILLIGRAM
     Route: 048
     Dates: start: 20130124
  19. IVIGLOB EX [Concomitant]
     Active Substance: HUMAN IMMUNOGLOBULIN G
     Indication: Myasthenic syndrome
     Dosage: AS NEEDED
     Route: 042
     Dates: start: 20150223, end: 20150615
  20. KETAMINE HYDROCHLORIDE [Concomitant]
     Active Substance: KETAMINE HYDROCHLORIDE
     Indication: Pain
     Dosage: 100 DOSAGE FORM
     Route: 061
     Dates: start: 20140711
  21. ASPIRIN [Concomitant]
     Active Substance: ASPIRIN
     Indication: Hepatic encephalopathy
     Dosage: 81 MILLIGRAM
     Route: 048
     Dates: start: 20200902, end: 20200902
  22. LEVETIRACETAM [Concomitant]
     Active Substance: LEVETIRACETAM
     Indication: Hepatic encephalopathy
     Dosage: 750 MILLIGRAM, BID
     Route: 048
     Dates: start: 20200902, end: 20200902
  23. TACROLIMUS [Concomitant]
     Active Substance: TACROLIMUS
     Indication: Hepatic encephalopathy
     Dosage: 2 MILLIGRAM, BID
     Route: 048
     Dates: start: 20200902, end: 20200902

REACTIONS (1)
  - Vascular device infection [Recovered/Resolved]

NARRATIVE: CASE EVENT DATE: 20150623
